FAERS Safety Report 25492339 (Version 1)
Quarter: 2025Q2

REPORT INFORMATION
  Report Type: Spontaneous
  Country: GB (occurrence: GB)
  Receive Date: 20250630
  Receipt Date: 20250630
  Transmission Date: 20250717
  Serious: Yes (Other)
  Sender: Haleon PLC
  Company Number: None

PATIENT
  Age: 51 Year
  Sex: Male
  Weight: 99 kg

DRUGS (5)
  1. ORLISTAT [Suspect]
     Active Substance: ORLISTAT
     Indication: Adverse drug reaction
     Dates: start: 20250305, end: 20250526
  2. SILDENAFIL [Concomitant]
     Active Substance: SILDENAFIL
     Indication: Erectile dysfunction
  3. ACETAMINOPHEN [Concomitant]
     Active Substance: ACETAMINOPHEN
     Indication: Pain management
  4. CODEINE [Concomitant]
     Active Substance: CODEINE
     Indication: Pain management
  5. ASPIRIN [Concomitant]
     Active Substance: ASPIRIN
     Indication: Anticoagulant therapy

REACTIONS (1)
  - Pancreatitis [Recovered/Resolved]

NARRATIVE: CASE EVENT DATE: 20250305
